FAERS Safety Report 9897261 (Version 4)
Quarter: 2015Q1

REPORT INFORMATION
  Report Type: Spontaneous
  Country: JP (occurrence: JP)
  Receive Date: 20140214
  Receipt Date: 20150119
  Transmission Date: 20150721
  Serious: Yes (Life-Threatening, Hospitalization, Disabling)
  Sender: FDA-Public Use
  Company Number: JP-ROCHE-1345558

PATIENT
  Age: 69 Year
  Sex: Male

DRUGS (6)
  1. TAMIFLU [Concomitant]
     Active Substance: OSELTAMIVIR PHOSPHATE
     Indication: INFLUENZA
     Dosage: OTHER PURPOSES: BRONCHITIS ACUTE
     Route: 048
     Dates: start: 20140120
  2. ROCEPHIN [Suspect]
     Active Substance: CEFTRIAXONE SODIUM
     Indication: BRONCHITIS
     Route: 041
     Dates: start: 20140121, end: 20140121
  3. HOKUNALIN [Concomitant]
     Active Substance: TULOBUTEROL
     Indication: INFLUENZA
     Dosage: OTHER PURPOSES: BRONCHITIS ACUTE
     Route: 062
     Dates: start: 20140120
  4. CARBOCISTEINE [Concomitant]
     Active Substance: CARBOCYSTEINE
     Indication: INFLUENZA
     Dosage: OTHER PURPOSES: BRONCHITIS ACUTE
     Route: 048
     Dates: start: 20140120
  5. KLARICID [Concomitant]
     Active Substance: CLARITHROMYCIN
     Indication: INFLUENZA
     Dosage: OTHER PURPOSES: BRONCHITIS ACUTE
     Route: 048
     Dates: start: 20140120
  6. TOCLASE [Concomitant]
     Active Substance: PENTOXYVERINE
     Indication: INFLUENZA
     Dosage: OTHER PURPOSES: BRONCHITIS ACUTE
     Route: 048
     Dates: start: 20140120

REACTIONS (4)
  - Nervous system disorder [Unknown]
  - Anaphylactic shock [Recovered/Resolved with Sequelae]
  - Hypoxic-ischaemic encephalopathy [Not Recovered/Not Resolved]
  - Cardiac arrest [Recovered/Resolved]

NARRATIVE: CASE EVENT DATE: 20140121
